FAERS Safety Report 22592818 (Version 2)
Quarter: 2023Q2

REPORT INFORMATION
  Report Type: Report from Study
  Country: US (occurrence: US)
  Receive Date: 20230613
  Receipt Date: 20230629
  Transmission Date: 20230721
  Serious: Yes (Hospitalization)
  Sender: FDA-Public Use
  Company Number: US-ALNYLAM PHARMACEUTICALS, INC.-ALN-2023-002624

PATIENT

DRUGS (1)
  1. AMVUTTRA [Suspect]
     Active Substance: VUTRISIRAN
     Indication: Hereditary neuropathic amyloidosis
     Dosage: UNK
     Route: 065
     Dates: start: 20221221, end: 20230621

REACTIONS (8)
  - Fall [Recovering/Resolving]
  - Poor venous access [Unknown]
  - Poor peripheral circulation [Unknown]
  - Muscle mass [Unknown]
  - Gait disturbance [Recovering/Resolving]
  - Skin mass [Unknown]
  - Ocular hyperaemia [Unknown]
  - Contusion [Unknown]
